FAERS Safety Report 4472963-X (Version None)
Quarter: 2004Q4

REPORT INFORMATION
  Report Type: 
  Country: None (occurrence: None)
  Receive Date: 20041012
  Receipt Date: 20041012
  Transmission Date: 20050328
  Serious: Yes (Hospitalization)
  Sender: FDA-Public Use
  Company Number: None

PATIENT
  Age: 51 Year
  Sex: Male
  Weight: 65.8 kg

DRUGS (1)
  1. DILTIAZEM [Suspect]
     Indication: ATRIAL FLUTTER
     Dosage: 20 MG, 20 MG IVP, IV PUSH
     Route: 042
     Dates: start: 20040726, end: 20040726

REACTIONS (2)
  - BRADYCARDIA [None]
  - HYPOTENSION [None]
